FAERS Safety Report 5252200-9 (Version None)
Quarter: 2007Q1

REPORT INFORMATION
  Report Type: 
  Country: None (occurrence: None)
  Receive Date: 20070227
  Receipt Date: 20070227
  Transmission Date: 20070707
  Serious: No
  Sender: FDA-Public Use
  Company Number: None

PATIENT
  Age: 60 Year
  Sex: Female
  Weight: 53.5244 kg

DRUGS (2)
  1. FLEBOGAMMA 5% DIF [Suspect]
     Indication: IMMUNE SYSTEM DISORDER
     Dosage: 20GM  QMONTH IV
     Route: 042
     Dates: start: 20070110, end: 20070110
  2. FLEBOGAMMA [Suspect]
     Indication: IMMOTILE CILIA SYNDROME
     Dosage: 5GM QMONTH IV
     Route: 042

REACTIONS (3)
  - DIZZINESS [None]
  - EAR PAIN [None]
  - TINNITUS [None]
